FAERS Safety Report 12903794 (Version 1)
Quarter: 2016Q4

REPORT INFORMATION
  Report Type: Spontaneous
  Country: SE (occurrence: SE)
  Receive Date: 20161102
  Receipt Date: 20161102
  Transmission Date: 20170207
  Serious: Yes (Life-Threatening, Hospitalization)
  Sender: FDA-Public Use
  Company Number: PHHY2016SE148370

PATIENT
  Age: 51 Year
  Sex: Female

DRUGS (1)
  1. ESTRADOT [Suspect]
     Active Substance: ESTRADIOL
     Indication: PRODUCT USED FOR UNKNOWN INDICATION
     Dosage: 100 MKR - 62.5 MKR
     Route: 065
     Dates: start: 201505

REACTIONS (1)
  - Affect lability [Recovered/Resolved with Sequelae]

NARRATIVE: CASE EVENT DATE: 2015
